FAERS Safety Report 7228289-4 (Version None)
Quarter: 2011Q1

REPORT INFORMATION
  Report Type: 
  Country: None (occurrence: None)
  Receive Date: 20110114
  Receipt Date: 20110106
  Transmission Date: 20110831
  Serious: Yes (Death, Hospitalization, Other)
  Sender: FDA-Public Use
  Company Number: GB-PFIZER INC-2010018108

PATIENT
  Age: 43 Year
  Sex: Female
  Weight: 88 kg

DRUGS (11)
  1. NEUPOGEN [Suspect]
     Indication: ACUTE MYELOID LEUKAEMIA
     Route: 058
  2. CLOFARABINE [Suspect]
     Indication: ACUTE MYELOID LEUKAEMIA
     Dosage: 40 MG/M2, 1X/DAY
     Dates: start: 20090921
  3. RASBURICASE [Concomitant]
  4. MYLOTARG [Suspect]
     Indication: ACUTE MYELOID LEUKAEMIA
     Dosage: 6 MG/M2, 1X/DAY
     Route: 042
     Dates: start: 20090921, end: 20090921
  5. AMBISOME [Concomitant]
  6. CYTARABINE [Suspect]
     Indication: ACUTE MYELOID LEUKAEMIA
     Dosage: 1 MG/M2, 1X/DAY
     Route: 042
     Dates: start: 20090921
  7. FLUDARA [Suspect]
     Indication: ACUTE MYELOID LEUKAEMIA
     Dosage: 30 MG/M2, 1X/DAY
     Route: 042
  8. CYTARABINE [Suspect]
     Dosage: 2 MG/M2, 1X/DAY
     Route: 042
  9. VALTREX [Concomitant]
  10. ZAVEDOS [Suspect]
     Dosage: 10 MG/M2, 1X/DAY
     Route: 042
  11. TAZOBACTAM [Concomitant]

REACTIONS (6)
  - DYSPNOEA [None]
  - PERICARDITIS [None]
  - MULTI-ORGAN FAILURE [None]
  - METABOLIC ACIDOSIS [None]
  - RENAL IMPAIRMENT [None]
  - SEPTIC SHOCK [None]
